FAERS Safety Report 6148569-3 (Version None)
Quarter: 2009Q2

REPORT INFORMATION
  Report Type: 
  Country: None (occurrence: None)
  Receive Date: 20090408
  Receipt Date: 20090331
  Transmission Date: 20091009
  Serious: Yes (Hospitalization)
  Sender: FDA-Public Use
  Company Number: PHHO2009AT04339

PATIENT
  Sex: Male

DRUGS (14)
  1. CYCLOSPORINE [Suspect]
     Dosage: 25 MG, QD
     Route: 048
     Dates: start: 20030909
  2. MYCOPHENOLATE MOFETIL [Suspect]
     Indication: RENAL TRANSPLANT
     Dosage: UNK
     Dates: start: 20030909
  3. PREDNISOLONE [Suspect]
     Indication: RENAL TRANSPLANT
     Dosage: UNK
     Dates: start: 20030912
  4. METHYLPREDNISOLONE 4MG TAB [Suspect]
  5. DILATREND [Concomitant]
  6. LESCOL [Concomitant]
  7. PANTOPRAZOLE SODIUM [Concomitant]
  8. AMOXICILLIN [Concomitant]
  9. CEFALEXIN [Concomitant]
  10. FELODIPINE [Concomitant]
  11. FLUCLOXACILLIN [Concomitant]
  12. MOXONIDINE [Concomitant]
  13. NITRENDIPIN [Concomitant]
  14. PENICILLIN [Concomitant]

REACTIONS (1)
  - ARTHRITIS [None]
